FAERS Safety Report 17088032 (Version 4)
Quarter: 2020Q1

REPORT INFORMATION
  Report Type: Spontaneous
  Country: GB (occurrence: GB)
  Receive Date: 20191128
  Receipt Date: 20200110
  Transmission Date: 20200409
  Serious: Yes (Life-Threatening)
  Sender: FDA-Public Use
  Company Number: GB-PFIZER INC-2019508106

PATIENT
  Age: 43 Year
  Sex: Female

DRUGS (4)
  1. PREDNISOLONE. [Concomitant]
     Active Substance: PREDNISOLONE
     Indication: INFECTION
  2. CEFTAZIDIME. [Suspect]
     Active Substance: CEFTAZIDIME
     Indication: CYSTIC FIBROSIS
     Dosage: 3 G, 3X/DAY (ON DAY 2 OF ADMISSION, AFTER THE FIRST ADMINISTRATION)
     Route: 042
  3. PREDNISOLONE. [Concomitant]
     Active Substance: PREDNISOLONE
     Indication: CYSTIC FIBROSIS
     Dosage: UNK
     Route: 048
  4. CEFTAZIDIME. [Suspect]
     Active Substance: CEFTAZIDIME
     Indication: RESPIRATORY TRACT INFECTION

REACTIONS (4)
  - Acute kidney injury [Recovering/Resolving]
  - Renal tubular necrosis [Recovering/Resolving]
  - Haemolytic anaemia [Recovering/Resolving]
  - Nausea [Unknown]
